FAERS Safety Report 10642705 (Version 1)
Quarter: 2014Q4

REPORT INFORMATION
  Report Type: Spontaneous
  Country: US (occurrence: None)
  Receive Date: 20141121
  Receipt Date: 20141121
  Transmission Date: 20150529
  Serious: No
  Sender: FDA-Public Use
  Company Number: 163-10004-14064461

PATIENT
  Age: 50 Year
  Sex: Male

DRUGS (6)
  1. MTX (METHOTREXATE SODIUM) (UNKNOWN) [Concomitant]
  2. OTEZLA [Suspect]
     Active Substance: APREMILAST
     Indication: PSORIATIC ARTHROPATHY
     Dosage: 60 MG, 2 IN 1 D, PO
     Route: 048
     Dates: start: 20140616
  3. LIPITOR [Concomitant]
     Active Substance: ATORVASTATIN CALCIUM
  4. ASA (ACETYLSALICYLIC ACID) (UNKNOWN) [Concomitant]
  5. NEURONTIN (GABAPENTIN) (UNKNOWN) [Concomitant]
  6. ZOLOFT (SERTRALINE HYDROCHLORIDE) (UNKNOWN) [Concomitant]

REACTIONS (3)
  - Nausea [None]
  - Body temperature increased [None]
  - Hyperhidrosis [None]

NARRATIVE: CASE EVENT DATE: 20140619
